FAERS Safety Report 7432349-2 (Version None)
Quarter: 2011Q2

REPORT INFORMATION
  Report Type: 
  Country: None (occurrence: None)
  Receive Date: 20110422
  Receipt Date: 20070208
  Transmission Date: 20111010
  Serious: Yes (Other)
  Sender: FDA-Public Use
  Company Number: PHHY2007MX03806

PATIENT
  Sex: Female

DRUGS (1)
  1. CO-DIOVAN [Suspect]
     Indication: HYPERTENSION
     Dosage: 160 MG VALS AND 12.5 MG HYDR
     Route: 048
     Dates: start: 20051101

REACTIONS (5)
  - BACK PAIN [None]
  - EPISTAXIS [None]
  - HEADACHE [None]
  - MOUTH HAEMORRHAGE [None]
  - HYPERTENSION [None]
